FAERS Safety Report 11360384 (Version 1)
Quarter: 2015Q3

REPORT INFORMATION
  Report Type: Report from Study
  Country: US (occurrence: US)
  Receive Date: 20150810
  Receipt Date: 20150810
  Transmission Date: 20151125
  Serious: Yes (Life-Threatening, Hospitalization, Other)
  Sender: FDA-Public Use
  Company Number: PHEH2015US001943

PATIENT
  Age: 55 Year
  Sex: Female
  Weight: 46.26 kg

DRUGS (1)
  1. EXTAVIA [Suspect]
     Active Substance: INTERFERON BETA-1B
     Indication: MULTIPLE SCLEROSIS
     Dosage: 0.25 MG, QOD (1ML)
     Route: 058
     Dates: start: 20140503

REACTIONS (4)
  - Small intestinal obstruction [Recovered/Resolved]
  - Weight decreased [Unknown]
  - Injection site pain [Unknown]
  - Injection site erythema [Unknown]

NARRATIVE: CASE EVENT DATE: 20140808
